FAERS Safety Report 17045890 (Version 1)
Quarter: 2019Q4

REPORT INFORMATION
  Report Type: Spontaneous
  Country: GB (occurrence: GB)
  Receive Date: 20191118
  Receipt Date: 20191118
  Transmission Date: 20200122
  Serious: Yes (Hospitalization)
  Sender: FDA-Public Use
  Company Number: GB-TEVA-2019-GB-1137742

PATIENT
  Age: 48 Year
  Sex: Male
  Weight: 121 kg

DRUGS (3)
  1. PARACETAMOL [Concomitant]
     Active Substance: ACETAMINOPHEN
  2. RAMIPRIL. [Suspect]
     Active Substance: RAMIPRIL
     Indication: ESSENTIAL HYPERTENSION
     Dosage: 2.5 MG PER DAY
     Route: 048
     Dates: start: 20180131, end: 20180415
  3. CODEINE [Concomitant]
     Active Substance: CODEINE

REACTIONS (3)
  - Angioedema [Recovered/Resolved]
  - Swelling face [Unknown]
  - Swollen tongue [Unknown]

NARRATIVE: CASE EVENT DATE: 20180415
